FAERS Safety Report 7501205-3 (Version None)
Quarter: 2011Q2

REPORT INFORMATION
  Report Type: 
  Country: None (occurrence: None)
  Receive Date: 20110524
  Receipt Date: 20110511
  Transmission Date: 20111010
  Serious: Yes (Other)
  Sender: FDA-Public Use
  Company Number: DE-UCBSA-032640

PATIENT
  Sex: Male

DRUGS (2)
  1. OPRIPRAMOL [Suspect]
     Dosage: DOSE: 50, 20 TABLETS
  2. KEPPRA [Suspect]
     Dosage: 1000 MG. TABLETS,30 TABLETS, TOTAL QUANTITY: 30,000 MG

REACTIONS (3)
  - SOPOR [None]
  - SUICIDE ATTEMPT [None]
  - ELECTROCARDIOGRAM CHANGE [None]
